FAERS Safety Report 23966749 (Version 3)
Quarter: 2025Q2

REPORT INFORMATION
  Report Type: Spontaneous
  Country: US (occurrence: US)
  Receive Date: 20240612
  Receipt Date: 20250618
  Transmission Date: 20250716
  Serious: No
  Sender: AMGEN
  Company Number: US-AMGEN-USASP2024114292

PATIENT
  Age: 27 Year
  Sex: Female

DRUGS (1)
  1. AMJEVITA [Suspect]
     Active Substance: ADALIMUMAB-ATTO
     Indication: Colitis ulcerative
     Dosage: 40 MG/0.4 ML, Q2WK (3RD DOSE)
     Route: 065

REACTIONS (2)
  - Accidental exposure to product [Unknown]
  - Device difficult to use [Unknown]

NARRATIVE: CASE EVENT DATE: 20240608
